FAERS Safety Report 11087546 (Version 1)
Quarter: 2015Q2

REPORT INFORMATION
  Report Type: Spontaneous
  Country: US (occurrence: None)
  Receive Date: 20150501
  Receipt Date: 20150501
  Transmission Date: 20150821
  Serious: Yes (Life-Threatening, Hospitalization)
  Sender: FDA-Public Use
  Company Number: None

PATIENT
  Age: 68 Year
  Sex: Male
  Weight: 111 kg

DRUGS (41)
  1. REGLAN [Concomitant]
     Active Substance: METOCLOPRAMIDE HYDROCHLORIDE
  2. BENAZEPRIL [Concomitant]
     Active Substance: BENAZEPRIL\BENAZEPRIL HYDROCHLORIDE
  3. GLUCOSAMINE COMPLEX [Concomitant]
     Active Substance: GLUCOSAMINE\GLUCOSAMINE SULFATE
  4. IMODIUM [Concomitant]
     Active Substance: LOPERAMIDE HYDROCHLORIDE
  5. MAG-OX [Concomitant]
     Active Substance: MAGNESIUM OXIDE
  6. MIRALAX [Concomitant]
     Active Substance: POLYETHYLENE GLYCOL 3350
  7. ALLOPURINOL. [Concomitant]
     Active Substance: ALLOPURINOL
  8. AMARYL [Concomitant]
     Active Substance: GLIMEPIRIDE
  9. VITAMIN D [Concomitant]
     Active Substance: CHOLECALCIFEROL
  10. XOLAIR [Concomitant]
     Active Substance: OMALIZUMAB
  11. VITAMIN B6 [Concomitant]
     Active Substance: PYRIDOXINE HYDROCHLORIDE
  12. ADVAIR HFA [Concomitant]
     Active Substance: FLUTICASONE PROPIONATE\SALMETEROL XINAFOATE
  13. CYMBALTA [Concomitant]
     Active Substance: DULOXETINE HYDROCHLORIDE
  14. PATANOL [Concomitant]
     Active Substance: OLOPATADINE HYDROCHLORIDE
  15. SYNTHROID [Concomitant]
     Active Substance: LEVOTHYROXINE SODIUM
  16. TYLENOL [Concomitant]
     Active Substance: ACETAMINOPHEN
  17. BENICAR [Concomitant]
     Active Substance: OLMESARTAN MEDOXOMIL
  18. ULTRAM [Concomitant]
     Active Substance: TRAMADOL HYDROCHLORIDE
  19. CELEBREX [Concomitant]
     Active Substance: CELECOXIB
  20. FOLIC ACID. [Concomitant]
     Active Substance: FOLIC ACID
  21. VICTOZA [Concomitant]
     Active Substance: LIRAGLUTIDE
  22. PROVENTIL [Concomitant]
     Active Substance: ALBUTEROL
  23. XOLAIR [Suspect]
     Active Substance: OMALIZUMAB
     Indication: ASTHMA
     Route: 058
     Dates: start: 20140114, end: 20150328
  24. ASPIRIN ENTERIC COATED [Concomitant]
     Active Substance: ASPIRIN
  25. ONGLUZA [Concomitant]
  26. FLOMAX [Concomitant]
     Active Substance: TAMSULOSIN HYDROCHLORIDE
  27. LASIX [Concomitant]
     Active Substance: FUROSEMIDE
  28. BACTRIM [Concomitant]
     Active Substance: SULFAMETHOXAZOLE\TRIMETHOPRIM
  29. DALIRESP [Concomitant]
     Active Substance: ROFLUMILAST
  30. LACTOBACILLUS [Concomitant]
     Active Substance: LACTOBACILLUS ACIDOPHILUS
  31. MULTIVITAMIN DAILY [Concomitant]
  32. FISH OIL [Concomitant]
     Active Substance: FISH OIL
  33. VITAMIN B12 [Concomitant]
     Active Substance: CYANOCOBALAMIN
  34. NASACORT [Concomitant]
     Active Substance: TRIAMCINOLONE ACETONIDE
  35. SINGULAIR [Concomitant]
     Active Substance: MONTELUKAST SODIUM
  36. THEOPHYLLINE [Concomitant]
     Active Substance: THEOPHYLLINE ANHYDROUS
  37. SIMVASTATIN. [Concomitant]
     Active Substance: SIMVASTATIN
  38. METFORMIN/SAXAGLIPTIN (KOMBIGLYZE) [Concomitant]
  39. CHONDROITIN COMPLEX [Concomitant]
  40. CARDIZEM CD [Concomitant]
     Active Substance: DILTIAZEM HYDROCHLORIDE
  41. PATADAY [Concomitant]
     Active Substance: OLOPATADINE HYDROCHLORIDE

REACTIONS (1)
  - Cardiomyopathy [None]

NARRATIVE: CASE EVENT DATE: 20150328
